FAERS Safety Report 8493415-6 (Version None)
Quarter: 2012Q3

REPORT INFORMATION
  Report Type: 
  Country: None (occurrence: None)
  Receive Date: 20120706
  Receipt Date: 20120629
  Transmission Date: 20120928
  Serious: Yes (Hospitalization)
  Sender: FDA-Public Use
  Company Number: US-JNJFOC-20120211577

PATIENT
  Age: 28 Year
  Sex: Female
  Weight: 95.1 kg

DRUGS (4)
  1. ACETAMINOPHEN [Suspect]
     Indication: PRODUCT USED FOR UNKNOWN INDICATION
     Route: 048
  2. ASPIRIN [Suspect]
     Indication: PRODUCT USED FOR UNKNOWN INDICATION
     Route: 048
  3. ACETAMINOPHEN [Suspect]
     Route: 048
  4. ETHANOL [Concomitant]
     Indication: PRODUCT USED FOR UNKNOWN INDICATION
     Route: 048

REACTIONS (5)
  - METABOLIC ACIDOSIS [None]
  - DEPRESSED LEVEL OF CONSCIOUSNESS [None]
  - TOXICITY TO VARIOUS AGENTS [None]
  - SUICIDE ATTEMPT [None]
  - MULTIPLE DRUG OVERDOSE [None]
